APPROVED DRUG PRODUCT: PENTOBARBITAL SODIUM
Active Ingredient: PENTOBARBITAL SODIUM
Strength: 100MG
Dosage Form/Route: CAPSULE;ORAL
Application: A083284 | Product #001
Applicant: VITARINE PHARMACEUTICALS INC
Approved: Approved Prior to Jan 1, 1982 | RLD: No | RS: No | Type: DISCN